FAERS Safety Report 8908971 (Version 2)
Quarter: 2012Q4

REPORT INFORMATION
  Report Type: Report from Study
  Country: JP (occurrence: JP)
  Receive Date: 20121114
  Receipt Date: 20121119
  Transmission Date: 20130627
  Serious: Yes (Hospitalization)
  Sender: FDA-Public Use
  Company Number: JP-VERTEX PHARMACEUTICAL INC.-AE-2012-007854

PATIENT
  Age: 46 Year
  Sex: Male

DRUGS (8)
  1. VX-950 (TELAPREVIR) [Suspect]
     Indication: CHRONIC HEPATITIS C
     Dosage: 2250 mg, qd
     Route: 048
     Dates: start: 20120216, end: 20120510
  2. RIBAVIRIN [Suspect]
     Indication: CHRONIC HEPATITIS C
     Dosage: 800 mg, qd
     Route: 048
     Dates: start: 20120216, end: 20120523
  3. PEGINTERFERON ALFA-2B [Suspect]
     Indication: CHRONIC HEPATITIS C
     Dosage: 1.5 UNK, qw
     Route: 058
     Dates: start: 20120216, end: 20120516
  4. DEPAKENE-R [Concomitant]
     Dosage: 400 mg, qd
     Route: 048
  5. ROHYPNOL [Concomitant]
     Dosage: 2 mg, qd
     Route: 048
  6. LENDORMIN [Concomitant]
     Dosage: 0.25 mg, qd
     Route: 048
  7. VEGETAMIN B [Concomitant]
     Dosage: 1 DF, qd
     Route: 048
  8. ZYLORIC [Concomitant]
     Dosage: 200 mg, qd
     Route: 048
     Dates: end: 20120523

REACTIONS (2)
  - Substance-induced psychotic disorder [Recovered/Resolved]
  - Blood creatine phosphokinase increased [Recovered/Resolved]
